FAERS Safety Report 8796916 (Version 2)
Quarter: 2012Q4

REPORT INFORMATION
  Report Type: 
  Country: US (occurrence: US)
  Receive Date: 20120919
  Receipt Date: 20121212
  Transmission Date: 20130627
  Serious: No
  Sender: FDA-Public Use
  Company Number: US-VERTEX PHARMACEUTICAL INC.-AE-2012-011792

PATIENT
  Age: 48 Year
  Sex: Female
  Weight: 55 kg

DRUGS (8)
  1. VX-950 (TELAPREVIR) [Suspect]
     Indication: HEPATITIS C
     Dosage: 750 mg, tid
     Route: 048
  2. RIBAVIRIN [Concomitant]
     Indication: HEPATITIS C
     Dosage: 2 DF, bid
     Route: 048
  3. RIBAVIRIN [Concomitant]
     Dosage: 2 DF AM and 1 DF PM
     Route: 048
  4. PEGASYS [Concomitant]
     Indication: HEPATITIS C
     Dosage: 80 ?g, UNK
     Route: 058
  5. SLOW FE [Concomitant]
     Dosage: 142 mg, UNK
     Route: 048
  6. LEVOTHYROXIN [Concomitant]
     Dosage: 75 ?g, UNK
     Route: 048
  7. LORAZEPAM [Concomitant]
     Dosage: 0.5 mg, UNK
     Route: 048
  8. TYLENOL /00020001/ [Concomitant]
     Dosage: 500 mg, UNK
     Route: 048

REACTIONS (9)
  - Blood count abnormal [Unknown]
  - Throat tightness [Unknown]
  - Dizziness [Unknown]
  - Ear pain [Unknown]
  - Oropharyngeal pain [Unknown]
  - Fatigue [Unknown]
  - Haemoglobin decreased [Unknown]
  - Nausea [Unknown]
  - Dysgeusia [Unknown]
